FAERS Safety Report 6683941-4 (Version None)
Quarter: 2010Q2

REPORT INFORMATION
  Report Type: 
  Country: None (occurrence: None)
  Receive Date: 20100416
  Receipt Date: 20100407
  Transmission Date: 20101027
  Serious: Yes (Other)
  Sender: FDA-Public Use
  Company Number: US-PFIZER INC-2010026409

PATIENT
  Sex: Male
  Weight: 81.179 kg

DRUGS (1)
  1. TOVIAZ [Suspect]
     Indication: INCONTINENCE
     Dosage: 4 MG, 1X/DAY
     Route: 048
     Dates: start: 20091014, end: 20091028

REACTIONS (3)
  - DIPLOPIA [None]
  - VISUAL ACUITY REDUCED [None]
  - VISUAL IMPAIRMENT [None]
